FAERS Safety Report 5272514-6 (Version None)
Quarter: 2007Q1

REPORT INFORMATION
  Report Type: 
  Country: None (occurrence: None)
  Receive Date: 20070322
  Receipt Date: 20060906
  Transmission Date: 20070707
  Serious: No
  Sender: FDA-Public Use
  Company Number: US-BRISTOL-MYERS SQUIBB COMPANY-13470083

PATIENT
  Age: 42 Year
  Sex: Female

DRUGS (3)
  1. KENALOG-10 [Suspect]
     Indication: JOINT INJECTION
     Route: 030
     Dates: start: 20060808
  2. ATENOLOL [Concomitant]
  3. TRIPHASIL-28 [Concomitant]

REACTIONS (1)
  - MEDICATION ERROR [None]
